FAERS Safety Report 9991389 (Version 2)
Quarter: 2015Q1

REPORT INFORMATION
  Report Type: Spontaneous
  Country: JP (occurrence: JP)
  Receive Date: 20140310
  Receipt Date: 20150327
  Transmission Date: 20150721
  Serious: Yes (Hospitalization)
  Sender: FDA-Public Use
  Company Number: JP-009507513-1403JPN001872

PATIENT
  Sex: Male
  Weight: 76 kg

DRUGS (19)
  1. LASIX [Concomitant]
     Active Substance: FUROSEMIDE
     Indication: OEDEMA
     Dosage: 20 MG, QD
     Route: 051
     Dates: start: 20131209
  2. SOLU-CORTEF [Concomitant]
     Active Substance: HYDROCORTISONE SODIUM SUCCINATE
     Indication: URTICARIA
     Dosage: 100 MG, AS OCCASION ARISES
     Route: 051
     Dates: start: 20131201
  3. GRAN [Concomitant]
     Active Substance: FILGRASTIM
     Indication: NEUTROPENIA
     Dosage: 450 MICROGRAM, QD
     Route: 051
     Dates: start: 20131129, end: 20131213
  4. MINOCYCLINE [Concomitant]
     Active Substance: MINOCYCLINE\MINOCYCLINE HYDROCHLORIDE
     Indication: FEBRILE NEUTROPENIA
     Dosage: 100 MG, BID
     Route: 051
     Dates: start: 20131212
  5. MEROPEN [Concomitant]
     Active Substance: MEROPENEM
     Indication: FEBRILE NEUTROPENIA
     Dosage: 1 G, TID
     Route: 051
     Dates: start: 20131126, end: 20131209
  6. FINIBAX [Concomitant]
     Active Substance: DORIPENEM MONOHYDRATE
     Indication: FEBRILE NEUTROPENIA
     Dosage: 1 G, TID
     Route: 051
     Dates: start: 20131210
  7. GASTER [Concomitant]
     Active Substance: FAMOTIDINE
     Indication: GASTRIC ULCER
     Dosage: 20 MG, QD
     Route: 051
     Dates: start: 20131127
  8. VENILON [Concomitant]
     Active Substance: HUMAN IMMUNOGLOBULIN G
     Indication: FEBRILE NEUTROPENIA
     Dosage: 5 G, QD
     Route: 051
     Dates: start: 20131213, end: 20131214
  9. MICAFUNGIN SODIUM [Concomitant]
     Active Substance: MICAFUNGIN SODIUM
     Indication: FEBRILE NEUTROPENIA
     Dosage: 50 MG, QD, DIVIDED DOSE FREQUENCY UNKNOWN
     Route: 041
     Dates: start: 20130919, end: 20131210
  10. MORPHINE [Concomitant]
     Active Substance: MORPHINE
     Indication: CANCER PAIN
     Dosage: 10 MG, QD
     Route: 051
     Dates: start: 20131208
  11. ATARAX [Concomitant]
     Active Substance: HYDROXYZINE\HYDROXYZINE HYDROCHLORIDE
     Indication: URTICARIA
     Dosage: 25 MG, AS OCCASION ARISES
     Route: 051
     Dates: start: 20131201
  12. POTASSIUM CHLORIDE. [Concomitant]
     Active Substance: POTASSIUM CHLORIDE
     Indication: HYPOKALAEMIA
     Dosage: 20 ML, QD
     Route: 051
     Dates: start: 20131201
  13. CANCIDAS [Suspect]
     Active Substance: CASPOFUNGIN ACETATE
     Indication: FEBRILE NEUTROPENIA
     Dosage: 70 MG, QD
     Route: 041
     Dates: start: 20131209, end: 20131209
  14. TEICOPLANIN [Concomitant]
     Active Substance: TEICOPLANIN
     Indication: FEBRILE NEUTROPENIA
     Dosage: 800 MG, QD
     Route: 051
     Dates: start: 20131203
  15. CANCIDAS [Suspect]
     Active Substance: CASPOFUNGIN ACETATE
     Indication: FEBRILE NEUTROPENIA
     Dosage: 50 MG, QD
     Route: 041
     Dates: start: 20131210, end: 20131213
  16. FUNGUARD [Concomitant]
     Active Substance: MICAFUNGIN SODIUM
     Indication: INFECTION PROPHYLAXIS
     Dosage: 50 MG, QD
     Route: 051
     Dates: start: 20130919, end: 20131210
  17. SANDIMMUNE [Concomitant]
     Active Substance: CYCLOSPORINE
     Indication: PROPHYLAXIS
     Dosage: 300 MG, QD
     Route: 051
     Dates: start: 20131127
  18. MAGNESIUM SULFATE. [Concomitant]
     Active Substance: MAGNESIUM SULFATE
     Indication: HYPOMAGNESAEMIA
     Dosage: 20 ML, QD
     Route: 051
     Dates: start: 20131201
  19. VICCLOX [Concomitant]
     Active Substance: ACYCLOVIR SODIUM
     Indication: ANTIVIRAL PROPHYLAXIS
     Dosage: 250 MG, TID
     Route: 051
     Dates: start: 20131207

REACTIONS (2)
  - Venoocclusive disease [Recovered/Resolved]
  - Drug ineffective [Unknown]

NARRATIVE: CASE EVENT DATE: 20131213
